FAERS Safety Report 4998640-4 (Version None)
Quarter: 2006Q2

REPORT INFORMATION
  Report Type: 
  Country: None (occurrence: None)
  Receive Date: 20060509
  Receipt Date: 20060424
  Transmission Date: 20061013
  Serious: Yes (Death, Hospitalization)
  Sender: FDA-Public Use
  Company Number: GXKR2006GB02446

PATIENT
  Age: 71 Year
  Sex: Female

DRUGS (13)
  1. PIROXICAM (NGX)   (PIROXICAM) [Suspect]
     Dosage: 20 MG, BID, ORAL
     Route: 048
     Dates: start: 20031222
  2. ACETYLSALICYLOC ACID (NGX) (ACETYLSALICYLIC ACID [Suspect]
     Dosage: 150 MG, ORAL
     Route: 048
     Dates: start: 20051001
  3. SULFINPYRAZONE (SULFINPYRZONE) [Suspect]
     Dosage: 100 MG, QD, ORAL
     Route: 048
  4. PREDNISOLONE [Suspect]
     Dosage: 10 MG, QD, ORAL
     Route: 048
     Dates: start: 20051031
  5. NUELIN  SA (THEOPHYLLINE) TABLET [Suspect]
     Dosage: 175 MG, BID, ORAL
     Route: 048
     Dates: start: 20051001
  6. DIHYDROCODONE (DIHYRDROCODONE) [Concomitant]
  7. RANITIDINE [Concomitant]
  8. SALBUTAMOL (SALBUTAMOL) [Concomitant]
  9. BECLOMETHASONE DIPROPIONATE [Concomitant]
  10. GAVISCON (ALGINIC ACID, ALUMINIUM HYDROXIDE GEL, DRIED, MAGNESIUM TRIS [Concomitant]
  11. DILTIAZEM HCL [Concomitant]
  12. AZATHIOPRINE [Concomitant]
  13. DIAZEPAM [Concomitant]

REACTIONS (3)
  - CARDIAC ARREST [None]
  - DUODENAL ULCER PERFORATION [None]
  - MYOCARDIAL ISCHAEMIA [None]
